FAERS Safety Report 4721465-1 (Version None)
Quarter: 2005Q3

REPORT INFORMATION
  Report Type: 
  Country: None (occurrence: None)
  Receive Date: 20050721
  Receipt Date: 20040924
  Transmission Date: 20060218
  Serious: Yes (Death, Hospitalization)
  Sender: FDA-Public Use
  Company Number: US-BRISTOL-MYERS SQUIBB COMPANY-12711578

PATIENT
  Sex: Male

DRUGS (2)
  1. COUMADIN [Suspect]
     Route: 048
  2. MARIJUANA [Suspect]

REACTIONS (5)
  - CEREBROVASCULAR ACCIDENT [None]
  - CONTUSION [None]
  - INTERNATIONAL NORMALISED RATIO INCREASED [None]
  - LIMB INJURY [None]
  - SUBDURAL HAEMATOMA [None]
